FAERS Safety Report 17887894 (Version 2)
Quarter: 2025Q3

REPORT INFORMATION
  Report Type: Report from Study
  Country: EU (occurrence: EU)
  Receive Date: 20200612
  Receipt Date: 20250825
  Transmission Date: 20251020
  Serious: Yes (Other)
  Sender: AUROBINDO
  Company Number: EU-002147023-NVSC2020ES150313

PATIENT
  Age: 51 Year
  Sex: Male

DRUGS (2)
  1. EMTRICITABINE\TENOFOVIR [Suspect]
     Active Substance: EMTRICITABINE\TENOFOVIR
     Indication: Antiretroviral therapy
     Route: 065
  2. RILPIVIRINE [Suspect]
     Active Substance: RILPIVIRINE
     Indication: Antiretroviral therapy
     Route: 065

REACTIONS (2)
  - Hepatotoxicity [Unknown]
  - Nephropathy toxic [Unknown]
